FAERS Safety Report 8622047-1 (Version None)
Quarter: 2012Q3

REPORT INFORMATION
  Report Type: 
  Country: None (occurrence: None)
  Receive Date: 20120823
  Receipt Date: 20120823
  Transmission Date: 20120928
  Serious: No
  Sender: FDA-Public Use
  Company Number: None

PATIENT
  Age: 77 Year
  Sex: Female
  Weight: 80 kg

DRUGS (1)
  1. ATROPINE SULFATE [Suspect]
     Indication: BRADYCARDIA
     Dosage: IV
     Route: 042
     Dates: start: 20120113

REACTIONS (4)
  - POST PROCEDURAL COMPLICATION [None]
  - LOSS OF CONSCIOUSNESS [None]
  - DYSPHORIA [None]
  - DRUG INTERACTION [None]
